FAERS Safety Report 19782268 (Version 1)
Quarter: 2021Q3

REPORT INFORMATION
  Report Type: Report from Study
  Country: US (occurrence: US)
  Receive Date: 20210902
  Receipt Date: 20210902
  Transmission Date: 20211014
  Serious: Yes (Hospitalization, Other)
  Sender: FDA-Public Use
  Company Number: US-BAYER-2021-203226

PATIENT
  Age: 66 Year
  Sex: Male

DRUGS (4)
  1. FUROSEMIDE. [Concomitant]
     Active Substance: FUROSEMIDE
  2. ADEMPAS [Suspect]
     Active Substance: RIOCIGUAT
     Indication: PULMONARY ARTERIAL HYPERTENSION
  3. ADEMPAS [Suspect]
     Active Substance: RIOCIGUAT
     Indication: PULMONARY ARTERIAL HYPERTENSION
     Dosage: 1 MG, TID
     Route: 048
     Dates: start: 202104, end: 202108
  4. ASPIRIN (CARDIO) [Suspect]
     Active Substance: ASPIRIN

REACTIONS (6)
  - Haemorrhage [None]
  - Fall [None]
  - Gastric haemorrhage [None]
  - Dyspnoea [None]
  - Cervical vertebral fracture [None]
  - Blood pressure abnormal [None]

NARRATIVE: CASE EVENT DATE: 20210817
